FAERS Safety Report 18776665 (Version 1)
Quarter: 2021Q1

REPORT INFORMATION
  Report Type: Report from Study
  Country: AR (occurrence: AR)
  Receive Date: 20210122
  Receipt Date: 20210122
  Transmission Date: 20210419
  Serious: Yes (Life-Threatening)
  Sender: FDA-Public Use
  Company Number: AR-TAKEDA-AR201942893

PATIENT

DRUGS (5)
  1. VELAGLUCERASE ALFA [Suspect]
     Active Substance: VELAGLUCERASE ALFA
     Dosage: 60 MILLIGRAM/KILOGRAM
     Route: 042
     Dates: start: 20071210
  2. VELAGLUCERASE ALFA [Suspect]
     Active Substance: VELAGLUCERASE ALFA
     Dosage: 60 MILLIGRAM/KILOGRAM
     Route: 042
     Dates: start: 20071210
  3. VELAGLUCERASE ALFA [Suspect]
     Active Substance: VELAGLUCERASE ALFA
     Dosage: 60 MG/KG, 1X/2WKS
     Route: 050
     Dates: start: 20191127
  4. CLONAZEPAM. [Suspect]
     Active Substance: CLONAZEPAM
     Indication: PRODUCT USED FOR UNKNOWN INDICATION
     Dosage: UNK
     Route: 065
  5. VELAGLUCERASE ALFA [Suspect]
     Active Substance: VELAGLUCERASE ALFA
     Indication: PRODUCT USED FOR UNKNOWN INDICATION
     Dosage: 60 MG/KG, 1X/2WKS
     Route: 050

REACTIONS (4)
  - Contusion [Unknown]
  - Toxicity to various agents [Unknown]
  - Hip arthroplasty [Unknown]
  - Aggression [Unknown]

NARRATIVE: CASE EVENT DATE: 20200110
